FAERS Safety Report 4851129-5 (Version None)
Quarter: 2005Q4

REPORT INFORMATION
  Report Type: 
  Country: None (occurrence: None)
  Receive Date: 20051130
  Receipt Date: 20050823
  Transmission Date: 20060501
  Serious: No
  Sender: FDA-Public Use
  Company Number: FABR-11213

PATIENT
  Age: 35 Year
  Sex: Male
  Weight: 61.2356 kg

DRUGS (1)
  1. FABRAZYME [Suspect]
     Indication: FABRY'S DISEASE
     Dosage: 61 MG Q2WKS IV
     Route: 042
     Dates: start: 20030814

REACTIONS (1)
  - PROTEINURIA [None]
